FAERS Safety Report 14477505 (Version 1)
Quarter: 2018Q1

REPORT INFORMATION
  Report Type: Report from Study
  Country: US (occurrence: US)
  Receive Date: 20180201
  Receipt Date: 20180201
  Transmission Date: 20180509
  Serious: No
  Sender: FDA-Public Use
  Company Number: US-EXELIXIS-CABO-17010263

PATIENT
  Sex: Male
  Weight: 75.92 kg

DRUGS (1)
  1. CABOMETYX [Suspect]
     Active Substance: CABOZANTINIB S-MALATE
     Indication: RENAL CANCER
     Dosage: 60 MG, QD
     Route: 048
     Dates: start: 20161111, end: 201708

REACTIONS (7)
  - Alanine aminotransferase increased [Unknown]
  - Nasal disorder [Unknown]
  - Dehydration [Unknown]
  - Photosensitivity reaction [Unknown]
  - Blood thyroid stimulating hormone increased [Unknown]
  - Weight decreased [Unknown]
  - Malaise [Unknown]
